FAERS Safety Report 5213120-9 (Version None)
Quarter: 2007Q1

REPORT INFORMATION
  Report Type: 
  Country: None (occurrence: None)
  Receive Date: 20070118
  Receipt Date: 20070118
  Transmission Date: 20070707
  Serious: Yes (Other)
  Sender: FDA-Public Use
  Company Number: None

PATIENT
  Sex: Male

DRUGS (1)
  1. DHEA-SWANSON HEALTH PRODUCTS [Suspect]
     Indication: TARDIVE DYSKINESIA
     Dosage: 25 MG JUNE THRU AUGUST 2006
     Dates: start: 20060601, end: 20060801

REACTIONS (5)
  - ALOPECIA [None]
  - DERMAL CYST [None]
  - DRUG DOSE OMISSION [None]
  - HIRSUTISM [None]
  - SEBACEOUS HYPERPLASIA [None]
